FAERS Safety Report 19711689 (Version 2)
Quarter: 2021Q3

REPORT INFORMATION
  Report Type: Spontaneous
  Country: BE (occurrence: BE)
  Receive Date: 20210816
  Receipt Date: 20210913
  Transmission Date: 20211014
  Serious: Yes (Other)
  Sender: FDA-Public Use
  Company Number: NVSC2021BE182408

PATIENT
  Age: 50 Year
  Sex: Male

DRUGS (2)
  1. COSENTYX [Suspect]
     Active Substance: SECUKINUMAB
     Indication: ANKYLOSING SPONDYLITIS
     Dosage: 150 MG, 2 INJECTIONS
     Route: 065
     Dates: start: 202102
  2. COSENTYX [Suspect]
     Active Substance: SECUKINUMAB
     Indication: PSORIASIS
     Dosage: 300 MG, QMO
     Route: 058
     Dates: start: 202103, end: 202103

REACTIONS (6)
  - Weight increased [Unknown]
  - Varices oesophageal [Unknown]
  - Hepatic cirrhosis [Unknown]
  - Swelling [Unknown]
  - Oedema peripheral [Unknown]
  - Ascites [Unknown]
